FAERS Safety Report 4958152-0 (Version None)
Quarter: 2006Q1

REPORT INFORMATION
  Report Type: 
  Country: None (occurrence: None)
  Receive Date: 20060324
  Receipt Date: 20060314
  Transmission Date: 20060701
  Serious: Yes (Hospitalization)
  Sender: FDA-Public Use
  Company Number: GXKR2006JP01434

PATIENT
  Age: 76 Year
  Sex: Male
  Weight: 35.2 kg

DRUGS (3)
  1. RIMACTANE [Suspect]
     Indication: PULMONARY TUBERCULOSIS
     Dates: end: 20050520
  2. ISONIAZID [Suspect]
     Indication: PULMONARY TUBERCULOSIS
     Dates: end: 20050520
  3. ETHAMBUTOL                   (ETHAMBUTOL) [Suspect]
     Indication: PULMONARY TUBERCULOSIS
     Dates: end: 20050520

REACTIONS (5)
  - ANOREXIA [None]
  - BRONCHOPULMONARY ASPERGILLOSIS [None]
  - DRUG INEFFECTIVE [None]
  - HEPATIC FUNCTION ABNORMAL [None]
  - PULMONARY NECROSIS [None]
